FAERS Safety Report 10475269 (Version 1)
Quarter: 2014Q3

REPORT INFORMATION
  Report Type: Spontaneous
  Country: US (occurrence: None)
  Receive Date: 20140924
  Receipt Date: 20140924
  Transmission Date: 20150326
  Serious: No
  Sender: FDA-Public Use
  Company Number: None

PATIENT
  Age: 77 Year
  Sex: Male

DRUGS (1)
  1. XTANDI [Suspect]
     Active Substance: ENZALUTAMIDE
     Indication: PROSTATE CANCER
     Route: 048
     Dates: start: 20140831, end: 20140923

REACTIONS (4)
  - Anxiety [None]
  - Fatigue [None]
  - Swelling [None]
  - Unevaluable event [None]

NARRATIVE: CASE EVENT DATE: 20140914
